FAERS Safety Report 8934190 (Version 1)
Quarter: 2012Q4

REPORT INFORMATION
  Report Type: 
  Country: US (occurrence: US)
  Receive Date: 20121129
  Receipt Date: 20121129
  Transmission Date: 20130627
  Serious: No
  Sender: FDA-Public Use
  Company Number: US-GLAXOSMITHKLINE-A0991609A

PATIENT
  Age: 45 Year
  Sex: Male

DRUGS (3)
  1. WELLBUTRIN SR [Suspect]
     Indication: PRODUCT USED FOR UNKNOWN INDICATION
     Dosage: 100MG Per day
     Route: 048
     Dates: start: 201206
  2. METHYLPHENIDATE [Concomitant]
  3. LEXAPRO [Concomitant]

REACTIONS (2)
  - Nausea [Unknown]
  - Malaise [Unknown]
